FAERS Safety Report 15334029 (Version 1)
Quarter: 2018Q3

REPORT INFORMATION
  Report Type: Report from Study
  Country: JP (occurrence: JP)
  Receive Date: 20180830
  Receipt Date: 20180830
  Transmission Date: 20181010
  Serious: Yes (Death)
  Sender: FDA-Public Use
  Company Number: JP-DSJP-DSJ-2018-137986

PATIENT

DRUGS (27)
  1. EDOXABAN [Suspect]
     Active Substance: EDOXABAN TOSYLATE
     Indication: ATRIAL FIBRILLATION
     Dosage: 30 MG, QD
     Route: 048
     Dates: start: 20170215, end: 20170305
  2. ALCENOL [Concomitant]
     Active Substance: ATENOLOL
     Dosage: 50MG/DAY
     Route: 048
     Dates: end: 20170209
  3. PHENOBAL                           /00023201/ [Concomitant]
     Active Substance: PHENOBARBITAL
     Dosage: 0.03G/DAY
     Route: 048
     Dates: start: 20170214, end: 20170306
  4. ALOSITOL [Concomitant]
     Active Substance: ALLOPURINOL
     Dosage: 100MG/DAY
     Route: 048
     Dates: start: 20170510, end: 20170611
  5. LOW MOLECULAR DEXTRAN L [Concomitant]
     Dosage: 500ML/DAY
     Route: 042
     Dates: start: 20170210, end: 20170217
  6. ATENOLOL. [Concomitant]
     Active Substance: ATENOLOL
     Dosage: 25MG/DAY
     Route: 048
     Dates: start: 20170510, end: 20170611
  7. TEGRETOL [Concomitant]
     Active Substance: CARBAMAZEPINE
     Dosage: 0.7G/DAY
     Route: 048
     Dates: start: 20170214, end: 20170306
  8. EDOXABAN [Suspect]
     Active Substance: EDOXABAN TOSYLATE
     Dosage: 30 MG, QD
     Route: 048
     Dates: start: 20170510, end: 20170611
  9. ALLOPURINOL. [Concomitant]
     Active Substance: ALLOPURINOL
     Dosage: 100MG/DAY
     Route: 048
     Dates: end: 20170209
  10. TRICHLORMETHIAZIDE [Concomitant]
     Active Substance: TRICHLORMETHIAZIDE
     Dosage: 1MG/DAY
     Route: 048
     Dates: end: 20170209
  11. TRICHLORMETHIAZIDE [Concomitant]
     Active Substance: TRICHLORMETHIAZIDE
     Dosage: 1MG/DAY
     Route: 048
     Dates: start: 20170214, end: 20170306
  12. HEPARIN [Concomitant]
     Active Substance: HEPARIN SODIUM
     Dosage: 10ML/DAY
     Route: 042
     Dates: start: 20170211, end: 20170212
  13. HEPARIN [Concomitant]
     Active Substance: HEPARIN SODIUM
     Dosage: 20ML/DAY
     Route: 042
     Dates: start: 20170213, end: 20170213
  14. CANDESARTAN                        /01349502/ [Concomitant]
     Active Substance: CANDESARTAN
     Dosage: 8MG/DAY
     Route: 048
     Dates: start: 20170214, end: 20170306
  15. TEGRETOL [Concomitant]
     Active Substance: CARBAMAZEPINE
     Dosage: 0.7G/DAY
     Route: 048
     Dates: end: 20170209
  16. ALOSITOL [Concomitant]
     Active Substance: ALLOPURINOL
     Dosage: 100MG/DAY
     Route: 048
     Dates: start: 20170223, end: 20170306
  17. EDARAVONE [Concomitant]
     Active Substance: EDARAVONE
     Dosage: 60MG/DAY
     Route: 042
     Dates: start: 20170210, end: 20170217
  18. CANDESARTAN                        /01349502/ [Concomitant]
     Active Substance: CANDESARTAN
     Dosage: 8MG/DAY
     Route: 048
     Dates: end: 20170209
  19. NIFEDIPINE L [Concomitant]
     Active Substance: NIFEDIPINE
     Dosage: 40MG/DAY
     Route: 048
     Dates: end: 20170209
  20. PHENOBAL                           /00023201/ [Concomitant]
     Active Substance: PHENOBARBITAL
     Dosage: 0.03G/DAY
     Route: 048
     Dates: end: 20170209
  21. NIFEDIPINE L [Concomitant]
     Active Substance: NIFEDIPINE
     Dosage: 40MG/DAY
     Route: 048
     Dates: start: 20170214, end: 20170306
  22. MYSLEE [Concomitant]
     Active Substance: ZOLPIDEM TARTRATE
     Dosage: 5MG/DAY
     Route: 048
     Dates: end: 20170209
  23. ADALAT [Concomitant]
     Active Substance: NIFEDIPINE
     Dosage: 10MG/DAY
     Route: 048
     Dates: start: 20170510, end: 20170611
  24. XARELTO [Concomitant]
     Active Substance: RIVAROXABAN
     Dosage: 10MG/DAY
     Route: 048
     Dates: end: 20170209
  25. ALCENOL [Concomitant]
     Active Substance: ATENOLOL
     Dosage: 50MG/DAY
     Route: 048
     Dates: start: 20170214, end: 20170306
  26. HEPARIN [Concomitant]
     Active Substance: HEPARIN SODIUM
     Dosage: 1ML/DAY
     Route: 042
     Dates: start: 20170210, end: 20170210
  27. HEPARIN [Concomitant]
     Active Substance: HEPARIN SODIUM
     Dosage: 10ML/DAY
     Route: 042
     Dates: start: 20170214, end: 20170214

REACTIONS (1)
  - Aortic aneurysm rupture [Fatal]

NARRATIVE: CASE EVENT DATE: 20170611
